FAERS Safety Report 4924588-7 (Version None)
Quarter: 2006Q1

REPORT INFORMATION
  Report Type: 
  Country: None (occurrence: None)
  Receive Date: 20060222
  Receipt Date: 20060210
  Transmission Date: 20060701
  Serious: Yes (Other)
  Sender: FDA-Public Use
  Company Number: 2005167520

PATIENT
  Age: 14 Year
  Sex: Male

DRUGS (1)
  1. ZITHROMAX [Suspect]
     Indication: PNEUMONIA
     Dosage: 500 MG (500 MG, 1 IN 1 D), ORAL
     Route: 048
     Dates: start: 20051205, end: 20051206

REACTIONS (9)
  - ABNORMAL DREAMS [None]
  - AGGRESSION [None]
  - AMNESIA [None]
  - HALLUCINATION [None]
  - INCOHERENT [None]
  - PSYCHOMOTOR HYPERACTIVITY [None]
  - PSYCHOTIC DISORDER [None]
  - SELF-INJURIOUS IDEATION [None]
  - SUICIDAL IDEATION [None]
